FAERS Safety Report 10696163 (Version 2)
Quarter: 2015Q1

REPORT INFORMATION
  Report Type: Spontaneous
  Country: US (occurrence: US)
  Receive Date: 20150107
  Receipt Date: 20150223
  Transmission Date: 20150721
  Serious: Yes (Hospitalization)
  Sender: FDA-Public Use
  Company Number: US-BAYER-2015-001667

PATIENT
  Age: 43 Year
  Sex: Female
  Weight: 76.64 kg

DRUGS (10)
  1. LOVASTATIN. [Concomitant]
     Active Substance: LOVASTATIN
     Dosage: UNK
     Dates: start: 20130214
  2. ASPIRIN. [Concomitant]
     Active Substance: ASPIRIN
     Dosage: UNK
     Dates: start: 20130214
  3. FISH OIL [Concomitant]
     Active Substance: FISH OIL
     Dosage: UNK
     Dates: start: 20130214
  4. MIRENA [Suspect]
     Active Substance: LEVONORGESTREL
     Indication: MENORRHAGIA
     Dosage: 20 MCG/24HR, CONT
     Route: 015
     Dates: start: 20120718, end: 20130412
  5. AZOR [AMLODIPINE BESILATE,OLMESARTAN MEDOXOMIL] [Concomitant]
     Dosage: UNK
     Dates: start: 20130214
  6. NIASPAN [Concomitant]
     Active Substance: NIACIN
     Dosage: UNK
     Dates: start: 20130214
  7. PREVACID [Concomitant]
     Active Substance: LANSOPRAZOLE
     Dosage: UNK
     Dates: start: 20130214
  8. CITALOPRAM [Concomitant]
     Active Substance: CITALOPRAM HYDROBROMIDE
     Dosage: 20 MG, UNK
     Dates: start: 20130214
  9. ADVIL [Concomitant]
     Active Substance: IBUPROFEN
     Dosage: UNK
     Dates: start: 20130214
  10. BISOPROLOL FUMARATE. [Concomitant]
     Active Substance: BISOPROLOL FUMARATE
     Dosage: UNK
     Dates: start: 20130214

REACTIONS (7)
  - Embedded device [None]
  - Dysmenorrhoea [None]
  - Pelvic pain [None]
  - Device difficult to use [None]
  - Injury [None]
  - Device issue [None]
  - Device dislocation [None]

NARRATIVE: CASE EVENT DATE: 201209
